FAERS Safety Report 6159841 (Version 3)
Quarter: 2012Q4

REPORT INFORMATION
  Report Type: 
  Country: US (occurrence: US)
  Receive Date: 20061101
  Receipt Date: 20121108
  Transmission Date: 20130627
  Serious: Yes (Congenital Anomaly, Other)
  Sender: FDA-Public Use
  Company Number: US-JNJFOC-20061006456

PATIENT
  Age: 0 Year
  Sex: Male
  Weight: 1.36 kg

DRUGS (2)
  1. TOPAMAX [Suspect]
     Indication: FOETAL EXPOSURE DURING PREGNANCY
     Route: 064
     Dates: start: 200505
  2. TOPAMAX [Suspect]
     Indication: FOETAL EXPOSURE DURING PREGNANCY
     Route: 064
     Dates: start: 200504

REACTIONS (4)
  - Low birth weight baby [Unknown]
  - Developmental delay [Not Recovered/Not Resolved]
  - Otitis media chronic [Unknown]
  - Ankyloglossia congenital [Unknown]
